FAERS Safety Report 9154768 (Version 1)
Quarter: 2013Q1

REPORT INFORMATION
  Report Type: Spontaneous
  Country: US (occurrence: None)
  Receive Date: 20130305
  Receipt Date: 20130305
  Transmission Date: 20140127
  Serious: Yes (Other)
  Sender: FDA-Public Use
  Company Number: None

PATIENT
  Age: 38 Year
  Sex: Male
  Weight: 77.57 kg

DRUGS (1)
  1. LAMICTAL [Suspect]
     Indication: CONVULSION
     Dosage: IV PO QAM ?IV PO QPM ?ORAL
     Dates: start: 20130222

REACTIONS (6)
  - Nausea [None]
  - Vomiting [None]
  - Headache [None]
  - Convulsion [None]
  - Condition aggravated [None]
  - Drug intolerance [None]
